FAERS Safety Report 9547960 (Version 1)
Quarter: 2013Q2

REPORT INFORMATION
  Report Type: Spontaneous
  Country: US (occurrence: None)
  Receive Date: 20130628
  Receipt Date: 20130628
  Transmission Date: 20140414
  Serious: Yes (Hospitalization)
  Sender: FDA-Public Use
  Company Number: 139282

PATIENT
  Sex: Male

DRUGS (2)
  1. VANCOMYCIN HYDROCHLORIDE [Suspect]
     Indication: OSTEOMYELITIS
     Dosage: UNKNOWN, UNKNOWN, INTRAVENOUS; ^APPROXIMTELY 4 WEEKS^
     Route: 042
     Dates: start: 200812
  2. MOXIFLOXACIN [Concomitant]

REACTIONS (2)
  - Dermatitis bullous [None]
  - Erythema [None]
